FAERS Safety Report 18053118 (Version 1)
Quarter: 2020Q3

REPORT INFORMATION
  Report Type: Spontaneous
  Country: FI (occurrence: FI)
  Receive Date: 20200721
  Receipt Date: 20200721
  Transmission Date: 20201103
  Serious: Yes (Life-Threatening)
  Sender: FDA-Public Use
  Company Number: FI-ROCHE-2644027

PATIENT
  Age: 39 Year
  Sex: Male

DRUGS (3)
  1. MONTELUKAST SODIUM. [Concomitant]
     Active Substance: MONTELUKAST SODIUM
     Indication: URTICARIA
     Route: 048
     Dates: start: 20191217
  2. DESLORATADINE ACTAVIS [Concomitant]
     Active Substance: DESLORATADINE
     Indication: URTICARIA
     Route: 048
     Dates: start: 20191217
  3. XOLAIR [Suspect]
     Active Substance: OMALIZUMAB
     Indication: URTICARIA
     Route: 058
     Dates: start: 20200306

REACTIONS (3)
  - Suspected COVID-19 [Recovered/Resolved]
  - Urosepsis [Recovered/Resolved]
  - Escherichia urinary tract infection [Recovered/Resolved]

NARRATIVE: CASE EVENT DATE: 20200309
